FAERS Safety Report 21294994 (Version 2)
Quarter: 2022Q3

REPORT INFORMATION
  Report Type: Spontaneous
  Country: RO (occurrence: None)
  Receive Date: 20220905
  Receipt Date: 20220916
  Transmission Date: 20221027
  Serious: Yes (Death)
  Sender: FDA-Public Use
  Company Number: RO-ROCHE-3172619

PATIENT
  Age: 53 Year
  Sex: Male

DRUGS (3)
  1. RITUXIMAB [Suspect]
     Active Substance: RITUXIMAB
     Indication: Diffuse large B-cell lymphoma
     Dosage: 375 MG/SQM OF BODY AREA, SECOND ADMINISTRATION IN AUG/2022
     Route: 041
     Dates: start: 202207
  2. POLIVY [Suspect]
     Active Substance: POLATUZUMAB VEDOTIN-PIIQ
     Indication: Diffuse large B-cell lymphoma
     Dosage: DATE OF LAST ADMINISTRATION - AUG/2022, ONLY TWO ADMINISTRATIONS OF POLIVY
     Route: 065
     Dates: start: 202207
  3. BENDAMUSTINE [Suspect]
     Active Substance: BENDAMUSTINE
     Indication: Diffuse large B-cell lymphoma
     Dosage: 90 MG/BODY AREA, SECOND ADMINISTRATION IN AUG/2022
     Route: 065
     Dates: start: 202207

REACTIONS (1)
  - Death [Fatal]
